FAERS Safety Report 10951957 (Version 4)
Quarter: 2015Q2

REPORT INFORMATION
  Report Type: Spontaneous
  Country: US (occurrence: US)
  Receive Date: 20150325
  Receipt Date: 20150511
  Transmission Date: 20150821
  Serious: No
  Sender: FDA-Public Use
  Company Number: US-009507513-1503USA011809

PATIENT
  Age: 35 Year
  Sex: Female
  Weight: 64.85 kg

DRUGS (1)
  1. NEXPLANON [Suspect]
     Active Substance: ETONOGESTREL
     Indication: CONTRACEPTION
     Dosage: SINGLE ROD
     Route: 059
     Dates: start: 20141209, end: 20150109

REACTIONS (10)
  - Malaise [Recovered/Resolved]
  - Implant site pruritus [Unknown]
  - Chills [Unknown]
  - Nausea [Unknown]
  - Implant site erythema [Recovered/Resolved]
  - Implant site rash [Unknown]
  - Implant site vesicles [Recovered/Resolved]
  - Headache [Unknown]
  - Pyrexia [Unknown]
  - Implant site hypersensitivity [Unknown]

NARRATIVE: CASE EVENT DATE: 201412
